FAERS Safety Report 4883114-1 (Version None)
Quarter: 2006Q1

REPORT INFORMATION
  Report Type: 
  Country: None (occurrence: None)
  Receive Date: 20060118
  Receipt Date: 20060111
  Transmission Date: 20060701
  Serious: Yes (Life-Threatening)
  Sender: FDA-Public Use
  Company Number: GB-AVENTIS-200610368GDDC

PATIENT
  Age: 62 Year
  Sex: Female

DRUGS (2)
  1. METRONIDAZOLE [Suspect]
     Indication: TOOTH DISORDER
     Dosage: DOSE: 200 MG THREE TIMES DAILY
     Route: 048
     Dates: start: 20051213, end: 20051213
  2. ESCITALOPRAM OXALATE [Concomitant]
     Indication: AFFECTIVE DISORDER
     Dosage: DOSE: 20 MG
     Route: 048
     Dates: start: 20051209

REACTIONS (5)
  - BRONCHOSPASM [None]
  - HYPERSENSITIVITY [None]
  - PHARYNGEAL OEDEMA [None]
  - SWOLLEN TONGUE [None]
  - WHEEZING [None]
